FAERS Safety Report 17589876 (Version 1)
Quarter: 2020Q1

REPORT INFORMATION
  Report Type: Spontaneous
  Country: US (occurrence: US)
  Receive Date: 20200327
  Receipt Date: 20200327
  Transmission Date: 20200409
  Serious: No
  Sender: FDA-Public Use
  Company Number: US-ALLERGAN-2004923US

PATIENT
  Age: 41 Year
  Sex: Female

DRUGS (1)
  1. LATISSE [Suspect]
     Active Substance: BIMATOPROST
     Indication: GROWTH OF EYELASHES
     Dosage: QPM, ONE DROP IN THE CAP AND USES ONE APPLICATOR PER EYE
     Dates: start: 2012

REACTIONS (4)
  - Drug ineffective [Unknown]
  - Product quality issue [Unknown]
  - Therapy cessation [Unknown]
  - Eye irritation [Unknown]

NARRATIVE: CASE EVENT DATE: 201906
